FAERS Safety Report 5627421-3 (Version None)
Quarter: 2008Q1

REPORT INFORMATION
  Report Type: 
  Country: None (occurrence: None)
  Receive Date: 20080215
  Receipt Date: 20080206
  Transmission Date: 20080703
  Serious: Yes (Hospitalization, Other)
  Sender: FDA-Public Use
  Company Number: GR-AVENTIS-200811308GDDC

PATIENT
  Age: 42 Year
  Sex: Female

DRUGS (6)
  1. FLUOROURACIL [Suspect]
     Indication: BREAST CANCER
     Dosage: DOSE: UNK
     Dates: start: 20010101
  2. TAMOXIFEN CITRATE [Suspect]
     Indication: BREAST CANCER
     Dosage: DOSE: UNK
  3. TAXOL [Suspect]
     Indication: BREAST CANCER
     Dosage: DOSE: UNK
     Dates: start: 20010101
  4. EPIRUBICIN [Suspect]
     Indication: BREAST CANCER
     Dosage: DOSE: UNK
     Dates: start: 20010101
  5. CYCLOPHOSPHAMIDE [Concomitant]
     Indication: BREAST CANCER
     Dosage: DOSE: UNK
  6. RADIATION THERAPY [Concomitant]
     Indication: BREAST CANCER
     Dosage: DOSE: 47 GY

REACTIONS (1)
  - ACUTE MYELOID LEUKAEMIA [None]
